FAERS Safety Report 5685227-3 (Version None)
Quarter: 2008Q1

REPORT INFORMATION
  Report Type: 
  Country: None (occurrence: None)
  Receive Date: 20080328
  Receipt Date: 20080317
  Transmission Date: 20080703
  Serious: No
  Sender: FDA-Public Use
  Company Number: US-ELI_LILLY_AND_COMPANY-US200803004192

PATIENT
  Sex: Male

DRUGS (2)
  1. CYMBALTA [Suspect]
     Dosage: 60 MG, UNK
     Dates: start: 20080201, end: 20080317
  2. CYMBALTA [Suspect]
     Dosage: 1 D/F, UNK
     Dates: start: 20080101, end: 20080301

REACTIONS (1)
  - HEPATIC ENZYME INCREASED [None]
